FAERS Safety Report 12725099 (Version 2)
Quarter: 2016Q4

REPORT INFORMATION
  Report Type: Spontaneous
  Country: US (occurrence: US)
  Receive Date: 20160908
  Receipt Date: 20161002
  Transmission Date: 20170207
  Serious: No
  Sender: FDA-Public Use
  Company Number: US-ASTRAZENECA-2016SE90121

PATIENT
  Age: 4704 Week
  Sex: Female
  Weight: 61.2 kg

DRUGS (10)
  1. MILK THISTLE [Concomitant]
     Active Substance: MILK THISTLE
     Route: 065
  2. RED YEAST RICE [Concomitant]
     Active Substance: DIETARY SUPPLEMENT
  3. METOPROLOL SUCCINATE. [Suspect]
     Active Substance: METOPROLOL SUCCINATE
     Indication: HYPERTENSION
     Dosage: PAR PHARMACEUTICALS, 25 MG, TWICE A DAY
     Route: 048
     Dates: start: 2016
  4. METOPROLOL SUCCINATE. [Suspect]
     Active Substance: METOPROLOL SUCCINATE
     Indication: HYPERTENSION
     Dosage: 25 MG IN THE MORNING AND 50 MILLIGRAMS IN THE EVENING
     Route: 048
  5. VITAMIN B12 [Concomitant]
     Active Substance: CYANOCOBALAMIN
     Route: 060
  6. PLAVIX [Concomitant]
     Active Substance: CLOPIDOGREL BISULFATE
     Indication: ANTICOAGULANT THERAPY
     Route: 048
  7. VITAMIN D [Concomitant]
     Active Substance: CHOLECALCIFEROL
     Dosage: 2000
     Route: 048
  8. NATEGLINIDE/ANEGRELIDE [Concomitant]
     Indication: PLATELET COUNT INCREASED
     Route: 048
  9. COQ10 [Concomitant]
     Active Substance: UBIDECARENONE
     Dosage: 100 MG
     Route: 048
  10. FOLATE [Concomitant]
     Active Substance: FOLATE SODIUM
     Route: 048

REACTIONS (10)
  - Blood pressure increased [Not Recovered/Not Resolved]
  - Hypertension [Unknown]
  - Off label use [Unknown]
  - Drug ineffective [Not Recovered/Not Resolved]
  - Joint swelling [Not Recovered/Not Resolved]
  - Peripheral swelling [Not Recovered/Not Resolved]
  - Heart rate increased [Recovered/Resolved]
  - Fall [Unknown]
  - Foot fracture [Unknown]
  - Sleep disorder [Unknown]

NARRATIVE: CASE EVENT DATE: 2016
